FAERS Safety Report 8306537-7 (Version None)
Quarter: 2012Q2

REPORT INFORMATION
  Report Type: 
  Country: None (occurrence: None)
  Receive Date: 20120420
  Receipt Date: 20120420
  Transmission Date: 20120825
  Serious: Yes (Hospitalization)
  Sender: FDA-Public Use
  Company Number: None

PATIENT
  Age: 67 Year
  Sex: Male

DRUGS (1)
  1. LINEZOLID [Suspect]
     Dosage: 600 MG BID IV
     Route: 042
     Dates: start: 20101112, end: 20101118

REACTIONS (2)
  - AGITATION [None]
  - ANXIETY [None]
